FAERS Safety Report 5491586-7 (Version None)
Quarter: 2007Q4

REPORT INFORMATION
  Report Type: 
  Country: None (occurrence: None)
  Receive Date: 20071018
  Receipt Date: 20071018
  Transmission Date: 20080405
  Serious: Yes (Life-Threatening, Hospitalization)
  Sender: FDA-Public Use
  Company Number: None

PATIENT
  Age: 17 Year
  Sex: Female
  Weight: 50 kg

DRUGS (8)
  1. ACETAMINOPHEN [Suspect]
     Dosage: PO
     Route: 048
     Dates: start: 20070705
  2. ATIVAN [Concomitant]
  3. SEROQUEL [Concomitant]
  4. XANAX [Concomitant]
  5. AMBIEN [Concomitant]
  6. KLONOPIN [Concomitant]
  7. PENICILLIN [Concomitant]
  8. LAMICTAL [Concomitant]

REACTIONS (7)
  - ALANINE AMINOTRANSFERASE INCREASED [None]
  - ANALGESIC DRUG LEVEL INCREASED [None]
  - ASPARTATE AMINOTRANSFERASE INCREASED [None]
  - DEPRESSED LEVEL OF CONSCIOUSNESS [None]
  - NO THERAPEUTIC RESPONSE [None]
  - PUPILLARY REFLEX IMPAIRED [None]
  - UNRESPONSIVE TO STIMULI [None]
